FAERS Safety Report 9434073 (Version 1)
Quarter: 2013Q3

REPORT INFORMATION
  Report Type: Spontaneous
  Country: US (occurrence: US)
  Receive Date: 20130801
  Receipt Date: 20130801
  Transmission Date: 20140515
  Serious: No
  Sender: FDA-Public Use
  Company Number: US-BIOGENIDEC-2013BI070219

PATIENT
  Sex: Female

DRUGS (1)
  1. TYSABRI [Suspect]
     Indication: MULTIPLE SCLEROSIS
     Route: 042
     Dates: start: 20130621

REACTIONS (6)
  - Back pain [Not Recovered/Not Resolved]
  - Depressed mood [Recovered/Resolved]
  - Aphagia [Recovered/Resolved]
  - Anger [Recovered/Resolved]
  - Infusion site bruising [Not Recovered/Not Resolved]
  - Chills [Recovered/Resolved]
